FAERS Safety Report 24614354 (Version 2)
Quarter: 2024Q4

REPORT INFORMATION
  Report Type: Spontaneous
  Country: US (occurrence: US)
  Receive Date: 20241113
  Receipt Date: 20241119
  Transmission Date: 20250114
  Serious: Yes (Hospitalization, Other)
  Sender: PFIZER
  Company Number: US-PFIZER INC-202400298498

PATIENT
  Age: 72 Year
  Sex: Female

DRUGS (2)
  1. DAPTOMYCIN [Interacting]
     Active Substance: DAPTOMYCIN
     Dosage: UNK
  2. KEYTRUDA [Interacting]
     Active Substance: PEMBROLIZUMAB
     Indication: Immunomodulatory therapy
     Dosage: UNK

REACTIONS (3)
  - Drug interaction [Unknown]
  - Pneumonitis [Unknown]
  - Pulmonary fibrosis [Unknown]
